FAERS Safety Report 9106581 (Version 1)
Quarter: 2013Q1

REPORT INFORMATION
  Report Type: Spontaneous
  Country: US (occurrence: US)
  Receive Date: 20130221
  Receipt Date: 20130221
  Transmission Date: 20140127
  Serious: Yes (Other)
  Sender: FDA-Public Use
  Company Number: US-BAYER-2013-019971

PATIENT
  Age: 62 Year
  Sex: Female

DRUGS (11)
  1. BAYER ASPIRIN REGIMEN ADULT LOW STRENGTH [Suspect]
     Indication: ISCHAEMIC HEART DISEASE PROPHYLAXIS
     Dosage: 1 DF, QD
     Route: 048
  2. BRONKAID [Suspect]
     Indication: DYSPNOEA
     Dosage: 1 DF, BID
     Route: 048
  3. IBUPROFEN [Concomitant]
  4. METOPROLOL [Concomitant]
  5. HYDROCHLOROTHIAZIDE [Concomitant]
  6. COZAAR [Concomitant]
  7. SYNTHROID [Concomitant]
  8. LESCOL [Concomitant]
  9. MECLIZINE [Concomitant]
  10. PROAIR [Concomitant]
  11. ALBUTEROL [Concomitant]

REACTIONS (1)
  - Meniere^s disease [None]
